FAERS Safety Report 25104743 (Version 1)
Quarter: 2025Q1

REPORT INFORMATION
  Report Type: Report from Study
  Country: US (occurrence: US)
  Receive Date: 20250321
  Receipt Date: 20250321
  Transmission Date: 20250409
  Serious: Yes (Other)
  Sender: ROCHE
  Company Number: US-ROCHE-10000216089

PATIENT
  Age: 63 Year
  Sex: Female
  Weight: 58.51 kg

DRUGS (2)
  1. ACTEMRA ACTPEN [Suspect]
     Active Substance: TOCILIZUMAB
     Indication: Rheumatoid arthritis
     Dosage: 0.9ML
     Route: 058
     Dates: start: 2024, end: 202412
  2. ACTEMRA ACTPEN [Suspect]
     Active Substance: TOCILIZUMAB
     Dosage: 0.8 ML
     Route: 058

REACTIONS (2)
  - Skin cancer [Not Recovered/Not Resolved]
  - Neoplasm malignant [Unknown]

NARRATIVE: CASE EVENT DATE: 20250201
